FAERS Safety Report 23493219 (Version 1)
Quarter: 2024Q1

REPORT INFORMATION
  Report Type: Spontaneous
  Country: US (occurrence: None)
  Receive Date: 20240206
  Receipt Date: 20240206
  Transmission Date: 20240410
  Serious: Yes (Hospitalization)
  Sender: FDA-Public Use
  Company Number: None

PATIENT
  Age: 68 Year
  Sex: Male
  Weight: 58.5 kg

DRUGS (4)
  1. ALKA-SELTZER EXTRA STRENGTH [Suspect]
     Active Substance: ANHYDROUS CITRIC ACID\ASPIRIN\SODIUM BICARBONATE
     Indication: Dyspepsia
     Dosage: OTHER QUANTITY : 2 TABLET(S);?FREQUENCY : AS NEEDED;?
     Route: 048
     Dates: start: 20230905, end: 20230908
  2. wheeled walker [Concomitant]
  3. DEVICE [Concomitant]
     Active Substance: DEVICE
  4. vitamin C gummies [Concomitant]

REACTIONS (5)
  - Peripheral swelling [None]
  - Groin pain [None]
  - Dyspepsia [None]
  - Full blood count decreased [None]
  - Product formulation issue [None]

NARRATIVE: CASE EVENT DATE: 20230908
